FAERS Safety Report 20690323 (Version 2)
Quarter: 2022Q2

REPORT INFORMATION
  Report Type: Spontaneous
  Country: US (occurrence: None)
  Receive Date: 20220408
  Receipt Date: 20220517
  Transmission Date: 20220721
  Serious: Yes (Hospitalization, Other)
  Sender: FDA-Public Use
  Company Number: 2022A135831

PATIENT
  Age: 51 Year
  Sex: Male
  Weight: 48.1 kg

DRUGS (1)
  1. SYMBICORT [Suspect]
     Active Substance: BUDESONIDE\FORMOTEROL FUMARATE DIHYDRATE
     Indication: Dyspnoea
     Dosage: 160-4.5 MCG 1 PUFF ONCE A DAY
     Route: 055

REACTIONS (14)
  - COVID-19 [Unknown]
  - Pulmonary function test decreased [Not Recovered/Not Resolved]
  - Ejection fraction decreased [Unknown]
  - Cardiac disorder [Unknown]
  - Liver disorder [Unknown]
  - Illness [Not Recovered/Not Resolved]
  - Emphysema [Not Recovered/Not Resolved]
  - Delirium [Unknown]
  - Daydreaming [Unknown]
  - Chronic obstructive pulmonary disease [Not Recovered/Not Resolved]
  - Device malfunction [Unknown]
  - Device use issue [Unknown]
  - Wrong technique in device usage process [Unknown]
  - Product packaging quantity issue [Unknown]

NARRATIVE: CASE EVENT DATE: 20130101
